FAERS Safety Report 7223035-2 (Version None)
Quarter: 2011Q1

REPORT INFORMATION
  Report Type: 
  Country: None (occurrence: None)
  Receive Date: 20110112
  Receipt Date: 20110112
  Transmission Date: 20110831
  Serious: Yes (Congenital Anomaly)
  Sender: FDA-Public Use
  Company Number: DE-ABBOTT-10P-062-0675493-00

PATIENT
  Sex: Male
  Weight: 1.6 kg

DRUGS (5)
  1. ABACAVIR SULFATE LAMIVUDINE AND ZIDOVUDINE [Suspect]
     Indication: DRUG EXPOSURE DURING PREGNANCY
     Route: 064
  2. DARUNAVIR [Suspect]
     Indication: DRUG EXPOSURE DURING PREGNANCY
     Route: 064
  3. NORVIR [Suspect]
     Indication: DRUG EXPOSURE DURING PREGNANCY
     Route: 064
  4. TENOFOVIR DISOPROXIL FUMARATE [Suspect]
     Indication: DRUG EXPOSURE DURING PREGNANCY
     Route: 064
  5. RALTEGRAVIR [Suspect]
     Indication: DRUG EXPOSURE DURING PREGNANCY
     Route: 064

REACTIONS (6)
  - OESOPHAGEAL ATRESIA [None]
  - CONGENITAL ANOMALY [None]
  - DRUG EXPOSURE DURING PREGNANCY [None]
  - PREMATURE BABY [None]
  - SPINE MALFORMATION [None]
  - HEMIVERTEBRA [None]
